FAERS Safety Report 8009830-0 (Version None)
Quarter: 2011Q4

REPORT INFORMATION
  Report Type: 
  Country: None (occurrence: None)
  Receive Date: 20111221
  Receipt Date: 20111206
  Transmission Date: 20120403
  Serious: Yes (Hospitalization)
  Sender: FDA-Public Use
  Company Number: JPI-P-018402

PATIENT
  Age: 15 Year
  Sex: Female
  Weight: 47.6277 kg

DRUGS (6)
  1. VENLAFAXINE HCL [Concomitant]
  2. FLUOXETINE HYDROCHLORIDE [Suspect]
     Indication: PRODUCT USED FOR UNKNOWN INDICATION
     Dosage: ORAL
     Route: 048
     Dates: start: 20111129, end: 20111205
  3. XYREM [Suspect]
     Indication: CATAPLEXY
     Dosage: 4 GM (2 GM, 2 IN 1 D) ORAL, TITRATING DOSE ORAL, 5.5 GM (2.75 GM, 2 IN 1 D) ORAL, (3 GM 1ST DOSE/2.7
     Route: 048
     Dates: start: 20111028, end: 20111101
  4. XYREM [Suspect]
     Indication: CATAPLEXY
     Dosage: 4 GM (2 GM, 2 IN 1 D) ORAL, TITRATING DOSE ORAL, 5.5 GM (2.75 GM, 2 IN 1 D) ORAL, (3 GM 1ST DOSE/2.7
     Route: 048
     Dates: start: 20111101
  5. XYREM [Suspect]
     Indication: CATAPLEXY
     Dosage: 4 GM (2 GM, 2 IN 1 D) ORAL, TITRATING DOSE ORAL, 5.5 GM (2.75 GM, 2 IN 1 D) ORAL, (3 GM 1ST DOSE/2.7
     Route: 048
     Dates: start: 20110520, end: 20110101
  6. XYREM [Suspect]
     Indication: CATAPLEXY
     Dosage: 4 GM (2 GM, 2 IN 1 D) ORAL, TITRATING DOSE ORAL, 5.5 GM (2.75 GM, 2 IN 1 D) ORAL, (3 GM 1ST DOSE/2.7
     Route: 048
     Dates: start: 20110101, end: 20111027

REACTIONS (12)
  - CONDITION AGGRAVATED [None]
  - SINUS CONGESTION [None]
  - LACTOSE INTOLERANCE [None]
  - WEIGHT DECREASED [None]
  - SINUSITIS [None]
  - PYREXIA [None]
  - THROAT IRRITATION [None]
  - ANXIETY [None]
  - VIRAL INFECTION [None]
  - CHEST DISCOMFORT [None]
  - CATAPLEXY [None]
  - COELIAC DISEASE [None]
